FAERS Safety Report 20414292 (Version 2)
Quarter: 2022Q1

REPORT INFORMATION
  Report Type: Spontaneous
  Country: US (occurrence: US)
  Receive Date: 20220202
  Receipt Date: 20220212
  Transmission Date: 20220424
  Serious: Yes (Other)
  Sender: FDA-Public Use
  Company Number: US-CELLTRION INC.-2022US000848

PATIENT

DRUGS (1)
  1. TRUXIMA [Suspect]
     Active Substance: RITUXIMAB-ABBS
     Indication: Systemic lupus erythematosus
     Dosage: 1000 MG X 2 EVERY 4 MONTHS
     Dates: start: 202201

REACTIONS (3)
  - Systemic lupus erythematosus [Unknown]
  - Product dose omission issue [Unknown]
  - Off label use [Unknown]
